FAERS Safety Report 4434263-3 (Version None)
Quarter: 2004Q3

REPORT INFORMATION
  Report Type: 
  Country: None (occurrence: None)
  Receive Date: 20040825
  Receipt Date: 20040813
  Transmission Date: 20050211
  Serious: Yes (Hospitalization)
  Sender: FDA-Public Use
  Company Number: STA-AE-04-MTX-029

PATIENT
  Age: 50 Year
  Sex: Male

DRUGS (5)
  1. METHOTREXATE [Suspect]
     Indication: RHEUMATOID ARTHRITIS
  2. ENBREL [Suspect]
     Indication: RHEUMATOID ARTHRITIS
     Dosage: 25 MG
     Dates: start: 20001220, end: 20030301
  3. CALCICHEW (CALCIUM CARBONATE) [Concomitant]
  4. ALENDRONATE SODIUM [Concomitant]
  5. MELOXICAM [Concomitant]

REACTIONS (2)
  - ARTHRITIS BACTERIAL [None]
  - SINUS DISORDER [None]
